FAERS Safety Report 18580285 (Version 4)
Quarter: 2021Q1

REPORT INFORMATION
  Report Type: Report from Study
  Country: DE (occurrence: DE)
  Receive Date: 20201204
  Receipt Date: 20210225
  Transmission Date: 20210419
  Serious: Yes (Death, Life-Threatening, Hospitalization, Other)
  Sender: FDA-Public Use
  Company Number: DE-PFIZER INC-2020281384

PATIENT
  Age: 64 Year
  Sex: Female
  Weight: 102 kg

DRUGS (1)
  1. TALZENNA [Suspect]
     Active Substance: TALAZOPARIB TOSYLATE
     Indication: BREAST CANCER
     Dosage: 1 MG, CYCLIC, 21 DAYS CYCLE
     Route: 048
     Dates: start: 20151119, end: 20200721

REACTIONS (6)
  - Second primary malignancy [Recovered/Resolved with Sequelae]
  - Acute myeloid leukaemia [Recovered/Resolved with Sequelae]
  - Second primary malignancy [Fatal]
  - Myelodysplastic syndrome [Recovered/Resolved with Sequelae]
  - Second primary malignancy [Recovered/Resolved with Sequelae]
  - Acute myeloid leukaemia [Fatal]

NARRATIVE: CASE EVENT DATE: 20200724
